FAERS Safety Report 15369777 (Version 2)
Quarter: 2018Q4

REPORT INFORMATION
  Report Type: Spontaneous
  Country: US (occurrence: US)
  Receive Date: 20180911
  Receipt Date: 20181008
  Transmission Date: 20190204
  Serious: Yes (Hospitalization)
  Sender: FDA-Public Use
  Company Number: US-ORPHAN EUROPE-2054813

PATIENT
  Age: 12 Month
  Sex: Male

DRUGS (1)
  1. CARBAGLU [Suspect]
     Active Substance: CARGLUMIC ACID
     Indication: HYPERAMMONAEMIA
     Dates: start: 20180417

REACTIONS (2)
  - Viral infection [Unknown]
  - Pyrexia [Unknown]

NARRATIVE: CASE EVENT DATE: 201807
